FAERS Safety Report 6372918-4 (Version None)
Quarter: 2009Q3

REPORT INFORMATION
  Report Type: 
  Country: None (occurrence: None)
  Receive Date: 20090924
  Receipt Date: 20081118
  Transmission Date: 20100115
  Serious: No
  Sender: FDA-Public Use
  Company Number: US-ASTRAZENECA-2008UW25862

PATIENT
  Sex: Male
  Weight: 113.4 kg

DRUGS (10)
  1. SEROQUEL [Suspect]
     Indication: BIPOLAR DISORDER
     Route: 048
     Dates: start: 20081104
  2. SEROQUEL [Suspect]
     Indication: MANIA
     Route: 048
     Dates: start: 20081104
  3. SEROQUEL [Suspect]
     Route: 048
     Dates: start: 20081104
  4. SEROQUEL [Suspect]
     Route: 048
  5. SEROQUEL [Suspect]
     Route: 048
  6. SEROQUEL [Suspect]
     Route: 048
  7. SEROQUEL [Suspect]
     Route: 048
  8. SEROQUEL [Suspect]
     Route: 048
  9. SEROQUEL [Suspect]
     Route: 048
  10. INVEGA [Concomitant]

REACTIONS (5)
  - AMNESIA [None]
  - DRUG TOLERANCE [None]
  - FEELING DRUNK [None]
  - SEDATION [None]
  - WEIGHT INCREASED [None]
